FAERS Safety Report 5163536-4 (Version None)
Quarter: 2006Q4

REPORT INFORMATION
  Report Type: 
  Country: None (occurrence: None)
  Receive Date: 20061204
  Receipt Date: 20030129
  Transmission Date: 20070319
  Serious: Yes (Hospitalization, Disabling)
  Sender: FDA-Public Use
  Company Number: US-BRISTOL-MYERS SQUIBB COMPANY-12172623

PATIENT
  Age: 5 Month
  Sex: Male

DRUGS (6)
  1. VIDEX [Suspect]
     Indication: HIV INFECTION
     Route: 064
     Dates: end: 20020101
  2. RETROVIR [Suspect]
     Indication: HIV INFECTION
     Dosage: SYRUP
     Route: 064
     Dates: end: 20020101
  3. VIRACEPT [Suspect]
     Indication: HIV INFECTION
     Route: 064
     Dates: end: 20020101
  4. COMBIVIR [Suspect]
     Indication: HIV INFECTION
     Route: 064
  5. RETROVIR [Suspect]
     Route: 048
     Dates: start: 20020101, end: 20020101
  6. RETROVIR [Suspect]
     Route: 064
     Dates: start: 20020201, end: 20020225

REACTIONS (3)
  - CONVULSION [None]
  - PREGNANCY [None]
  - STRABISMUS [None]
